FAERS Safety Report 23107548 (Version 4)
Quarter: 2023Q4

REPORT INFORMATION
  Report Type: Spontaneous
  Country: JP (occurrence: JP)
  Receive Date: 20231026
  Receipt Date: 20231129
  Transmission Date: 20240110
  Serious: Yes (Other)
  Sender: FDA-Public Use
  Company Number: None

PATIENT

DRUGS (3)
  1. MEPOLIZUMAB [Suspect]
     Active Substance: MEPOLIZUMAB
     Dosage: UNK
  2. MEPOLIZUMAB [Suspect]
     Active Substance: MEPOLIZUMAB
     Dosage: UNK
     Dates: start: 2023
  3. DUPIXENT [Concomitant]
     Active Substance: DUPILUMAB
     Indication: Nasal disorder

REACTIONS (4)
  - Epiglottitis [Unknown]
  - Laryngeal granuloma [Unknown]
  - Eosinophil count increased [Unknown]
  - Therapeutic response decreased [Unknown]
